FAERS Safety Report 25148640 (Version 2)
Quarter: 2025Q2

REPORT INFORMATION
  Report Type: Spontaneous
  Country: BR (occurrence: BR)
  Receive Date: 20250402
  Receipt Date: 20250415
  Transmission Date: 20250716
  Serious: Yes (Other)
  Sender: SANOFI AVENTIS
  Company Number: BR-SA-2025SA090978

PATIENT
  Age: 41 Year
  Sex: Female
  Weight: 70 kg

DRUGS (3)
  1. ENOXAPARIN SODIUM [Suspect]
     Active Substance: ENOXAPARIN SODIUM
     Indication: Hypercoagulation
     Dosage: 60 MG, QD(60 MG 1 DOSE EVERY 1 DAY 1 INJECTION)
     Route: 065
  2. ALDOMET [Concomitant]
     Active Substance: METHYLDOPA
     Dosage: 250 MG, Q8H
  3. VITAMINS [Concomitant]
     Active Substance: VITAMINS
     Route: 065

REACTIONS (2)
  - Habitual abortion [Unknown]
  - Maternal exposure during pregnancy [Unknown]
